APPROVED DRUG PRODUCT: DOPAMINE HYDROCHLORIDE
Active Ingredient: DOPAMINE HYDROCHLORIDE
Strength: 40MG/ML
Dosage Form/Route: INJECTABLE;INJECTION
Application: N018656 | Product #001
Applicant: TELIGENT OU
Approved: Jun 28, 1983 | RLD: No | RS: No | Type: DISCN